FAERS Safety Report 13025233 (Version 1)
Quarter: 2016Q4

REPORT INFORMATION
  Report Type: Spontaneous
  Country: JP (occurrence: JP)
  Receive Date: 20161214
  Receipt Date: 20161214
  Transmission Date: 20170207
  Serious: Yes (Other)
  Sender: FDA-Public Use
  Company Number: JP-APOTEX-2016AP015620

PATIENT
  Sex: Male

DRUGS (1)
  1. PAXIL [Suspect]
     Active Substance: PAROXETINE HYDROCHLORIDE
     Indication: DEPRESSED MOOD
     Route: 048

REACTIONS (3)
  - Haemorrhoidal haemorrhage [Unknown]
  - Constipation [Unknown]
  - Haemorrhoids [Unknown]
